FAERS Safety Report 12032093 (Version 1)
Quarter: 2016Q1

REPORT INFORMATION
  Report Type: Report from Study
  Country: US (occurrence: US)
  Receive Date: 20160207
  Receipt Date: 20160207
  Transmission Date: 20160526
  Serious: No
  Sender: FDA-Public Use
  Company Number: US-ABBVIE-15K-163-1511820-00

PATIENT
  Age: 61 Year
  Sex: Female

DRUGS (10)
  1. MTX [Concomitant]
     Active Substance: METHOTREXATE SODIUM
     Indication: RHEUMATOID ARTHRITIS
  2. DEPAKOTE [Concomitant]
     Active Substance: DIVALPROEX SODIUM
     Indication: MIGRAINE
  3. PHENERGAN [Concomitant]
     Active Substance: PROMETHAZINE HYDROCHLORIDE
     Indication: IMPAIRED GASTRIC EMPTYING
  4. HUMIRA [Suspect]
     Active Substance: ADALIMUMAB
     Indication: RHEUMATOID ARTHRITIS
     Route: 058
     Dates: start: 20150429, end: 20151018
  5. DIOVAN [Concomitant]
     Active Substance: VALSARTAN
     Indication: HYPERTENSION
  6. BACLOFEN. [Concomitant]
     Active Substance: BACLOFEN
     Indication: HYPERTENSION
  7. DEPAKOTE [Concomitant]
     Active Substance: DIVALPROEX SODIUM
     Indication: NEUROPATHY PERIPHERAL
  8. NEURONTIN [Concomitant]
     Active Substance: GABAPENTIN
     Indication: NEUROPATHY PERIPHERAL
  9. LEVOTHYROXINE. [Concomitant]
     Active Substance: LEVOTHYROXINE
     Indication: HORMONE REPLACEMENT THERAPY
  10. NEURONTIN [Concomitant]
     Active Substance: GABAPENTIN
     Indication: MIGRAINE

REACTIONS (4)
  - Rosacea [Unknown]
  - Oedema peripheral [Unknown]
  - Weight increased [Unknown]
  - Exfoliative rash [Unknown]

NARRATIVE: CASE EVENT DATE: 201504
